FAERS Safety Report 13580745 (Version 1)
Quarter: 2017Q2

REPORT INFORMATION
  Report Type: Spontaneous
  Country: US (occurrence: US)
  Receive Date: 20170525
  Receipt Date: 20170525
  Transmission Date: 20170830
  Serious: Yes (Hospitalization)
  Sender: FDA-Public Use
  Company Number: US-PFIZER INC-2017172697

PATIENT
  Age: 62 Year
  Sex: Female
  Weight: 51.26 kg

DRUGS (2)
  1. HYDROCHLOROTHIAZIDE. [Concomitant]
     Active Substance: HYDROCHLOROTHIAZIDE
     Indication: BLOOD PRESSURE ABNORMAL
     Dosage: 25 MG, DAILY, ONE EACH MORNING
  2. CHAPSTICK CLASSIC ORIGINAL [Suspect]
     Active Substance: PETROLATUM
     Indication: CHAPPED LIPS
     Dosage: (APPLIED FREQUENTLY)
     Dates: start: 20170317, end: 20170417

REACTIONS (4)
  - Reaction to drug excipients [Recovered/Resolved]
  - Oral discomfort [Recovered/Resolved]
  - Lip pain [Recovered/Resolved]
  - Condition aggravated [Recovered/Resolved]
